FAERS Safety Report 14217063 (Version 1)
Quarter: 2017Q4

REPORT INFORMATION
  Report Type: Spontaneous
  Country: US (occurrence: US)
  Receive Date: 20171122
  Receipt Date: 20171122
  Transmission Date: 20180321
  Serious: No
  Sender: FDA-Public Use
  Company Number: US-ELI_LILLY_AND_COMPANY-US201711002984

PATIENT
  Sex: Female

DRUGS (5)
  1. BASAGLAR [Suspect]
     Active Substance: INSULIN GLARGINE
     Indication: TYPE 2 DIABETES MELLITUS
     Dosage: UNK UNK, UNKNOWN
     Route: 058
  2. HUMALOG [Suspect]
     Active Substance: INSULIN LISPRO
     Indication: TYPE 2 DIABETES MELLITUS
     Dosage: 12 U, BID
  3. VICTOZA [Suspect]
     Active Substance: LIRAGLUTIDE
     Indication: TYPE 2 DIABETES MELLITUS
     Dosage: 18 MG, DAILY
     Route: 065
  4. GLIPIZIDE. [Suspect]
     Active Substance: GLIPIZIDE
     Indication: TYPE 2 DIABETES MELLITUS
     Dosage: UNK UNK, UNKNOWN
     Route: 065
  5. METFORMIN [Concomitant]
     Active Substance: METFORMIN HYDROCHLORIDE
     Indication: TYPE 2 DIABETES MELLITUS
     Dosage: UNK

REACTIONS (5)
  - Weight decreased [Unknown]
  - Nausea [Unknown]
  - Blood glucose abnormal [Unknown]
  - Weight increased [Unknown]
  - Glycosylated haemoglobin increased [Unknown]
